FAERS Safety Report 20660350 (Version 1)
Quarter: 2022Q1

REPORT INFORMATION
  Report Type: Spontaneous
  Country: JP (occurrence: JP)
  Receive Date: 20220331
  Receipt Date: 20220331
  Transmission Date: 20220424
  Serious: Yes (Other)
  Sender: FDA-Public Use
  Company Number: JP-PFIZER INC-202200465430

PATIENT
  Age: 7 Decade
  Sex: Female

DRUGS (2)
  1. LORBRENA [Suspect]
     Active Substance: LORLATINIB
  2. FYCOMPA [Suspect]
     Active Substance: PERAMPANEL

REACTIONS (1)
  - Epilepsy [Unknown]
